FAERS Safety Report 17431695 (Version 1)
Quarter: 2020Q1

REPORT INFORMATION
  Report Type: Spontaneous
  Country: US (occurrence: US)
  Receive Date: 20200218
  Receipt Date: 20200218
  Transmission Date: 20200409
  Serious: No
  Sender: FDA-Public Use
  Company Number: US-TAKEDA-2020TUS009859

PATIENT
  Sex: Male
  Weight: 98.87 kg

DRUGS (6)
  1. OXYBUTYNIN. [Concomitant]
     Active Substance: OXYBUTYNIN CHLORIDE
     Dosage: UNK
  2. POMALYST [Concomitant]
     Active Substance: POMALIDOMIDE
     Dosage: UNK
  3. IBUPROFEN. [Concomitant]
     Active Substance: IBUPROFEN
     Dosage: UNK
  4. CLONAZEPAM. [Concomitant]
     Active Substance: CLONAZEPAM
     Dosage: UNK
  5. NINLARO [Suspect]
     Active Substance: IXAZOMIB CITRATE
     Indication: PLASMA CELL MYELOMA
     Dosage: 3 MILLIGRAM, 1/WEEK
     Route: 048
  6. DULOXETINE. [Concomitant]
     Active Substance: DULOXETINE
     Dosage: UNK

REACTIONS (1)
  - Influenza [Unknown]
